FAERS Safety Report 13179947 (Version 1)
Quarter: 2017Q1

REPORT INFORMATION
  Report Type: Spontaneous
  Country: US (occurrence: US)
  Receive Date: 20170202
  Receipt Date: 20170202
  Transmission Date: 20170428
  Serious: Yes (Other)
  Sender: FDA-Public Use
  Company Number: US-PFIZER INC-2017044985

PATIENT
  Age: 59 Year
  Sex: Female
  Weight: 68 kg

DRUGS (8)
  1. TRAMADOL. [Concomitant]
     Active Substance: TRAMADOL
     Indication: PAIN
     Dosage: EVERY 4 HOURS AS NEEDED
     Route: 048
  2. ACETAMINOPHEN. [Concomitant]
     Active Substance: ACETAMINOPHEN
     Indication: PAIN
     Dosage: 1-2 TABLETS SOMETIMES 3, BY MOUTH, AS NEEDED
     Route: 048
  3. LORAZEPAM. [Concomitant]
     Active Substance: LORAZEPAM
     Indication: ANXIETY
     Dosage: 0.5MG, TABLETS, BY MOUTH, ONCE EVERY SIX MONTHS, AS NEEDED
     Route: 048
  4. PANTOPRAZOLE [Suspect]
     Active Substance: PANTOPRAZOLE SODIUM
     Indication: GASTROOESOPHAGEAL REFLUX DISEASE
     Dosage: 40MG, TABLETS, BY MOUTH, ONCE A DAY
     Route: 048
  5. OXYBUTYNIN [Concomitant]
     Active Substance: OXYBUTYNIN
     Indication: BLADDER DISORDER
     Dosage: 5MG, TABLETS, BY MOUTH, TWICE A DAY
     Route: 048
  6. NIFEDIPINE. [Suspect]
     Active Substance: NIFEDIPINE
     Indication: HYPERTENSION
     Dosage: 30MG, TABLETS, BY MOUTH, ONCE A DAY
     Route: 048
     Dates: start: 2008
  7. BENAZEPRIL [Concomitant]
     Active Substance: BENAZEPRIL HYDROCHLORIDE
     Indication: HYPERTENSION
     Dosage: 20MG, TABLETS, BY MOUTH, ONCE A DAY
     Route: 048
  8. SPRING VALLEY B12 SUPPLEMENT [Concomitant]
     Indication: VITAMIN B12 DECREASED
     Dosage: 2500MG, TABLETS THAT MELT UNDER HER TONGUE, SUBLINGUAL, ONCE A DAY
     Route: 060
     Dates: start: 2008

REACTIONS (1)
  - Ovarian cancer [Unknown]

NARRATIVE: CASE EVENT DATE: 2016
